FAERS Safety Report 12100115 (Version 2)
Quarter: 2016Q1

REPORT INFORMATION
  Report Type: Spontaneous
  Country: US (occurrence: US)
  Receive Date: 20160222
  Receipt Date: 20160225
  Transmission Date: 20160526
  Serious: Yes (Other)
  Sender: FDA-Public Use
  Company Number: US-PFIZER INC-2016101784

PATIENT
  Age: 69 Year
  Sex: Male
  Weight: 71.67 kg

DRUGS (17)
  1. XANAX [Suspect]
     Active Substance: ALPRAZOLAM
     Dosage: 6 MG, DAILY
  2. CARBIDOPA/LEVODOPA [Concomitant]
     Indication: PARKINSON^S DISEASE
     Dosage: 2 DF, UNK (EVERY TWO AND A HALF HOURS) (CARBIDOPA: 25MG, LEVODOPA: 100 MG)
     Route: 048
  3. PAXIL [Concomitant]
     Active Substance: PAROXETINE HYDROCHLORIDE
     Indication: OBSESSIVE-COMPULSIVE DISORDER
     Dosage: 30 MG, 2X/DAY
     Route: 048
  4. PAXIL [Concomitant]
     Active Substance: PAROXETINE HYDROCHLORIDE
     Indication: DEPRESSION
  5. BUSPIRONE [Concomitant]
     Active Substance: BUSPIRONE HYDROCHLORIDE
     Dosage: 15 MG, UNK
  6. XANAX [Suspect]
     Active Substance: ALPRAZOLAM
     Dosage: 7 MG, DAILY
  7. XANAX [Suspect]
     Active Substance: ALPRAZOLAM
     Dosage: 6 MG, DAILY
  8. AMANDINE [Concomitant]
     Indication: PARKINSON^S DISEASE
     Dosage: 2 DF, UNK (25/100 MG EVERY 2.5 HOURS AND ONE 50/200 MG TABLET AT BEDTIME)
     Route: 048
  9. AMANDINE [Concomitant]
     Dosage: 1 DF, 1X/DAY (ONE 50/200MG TABLET AT BEDTIME)
  10. ALPRAZOLAM. [Suspect]
     Active Substance: ALPRAZOLAM
     Indication: ANXIETY
     Dosage: 6-7 MG, DAILY
  11. ALPRAZOLAM. [Suspect]
     Active Substance: ALPRAZOLAM
     Indication: PANIC DISORDER
     Dosage: 1 MG, FIVE TO SIX TIMES A DAY
  12. XANAX [Suspect]
     Active Substance: ALPRAZOLAM
     Dosage: 5 MG, DAILY
  13. ALPRAZOLAM. [Suspect]
     Active Substance: ALPRAZOLAM
     Dosage: 4.5 MG, UNK
  14. XANAX [Suspect]
     Active Substance: ALPRAZOLAM
     Indication: ANXIETY
     Dosage: 1 MG, EVERY 4 HRS (ABOUT 5-6MG A DAY)
     Route: 048
  15. XANAX [Suspect]
     Active Substance: ALPRAZOLAM
     Dosage: 4.5 MG, DAILY
  16. BUSPIRONE [Concomitant]
     Active Substance: BUSPIRONE HYDROCHLORIDE
     Dosage: 5 MG, UNK
  17. BUSPIRONE [Concomitant]
     Active Substance: BUSPIRONE HYDROCHLORIDE
     Dosage: 10 MG, UNK

REACTIONS (9)
  - Walking aid user [Unknown]
  - Dependence [Unknown]
  - Hallucination [Not Recovered/Not Resolved]
  - Motor dysfunction [Not Recovered/Not Resolved]
  - Tremor [Not Recovered/Not Resolved]
  - Activities of daily living impaired [Not Recovered/Not Resolved]
  - Condition aggravated [Unknown]
  - Withdrawal syndrome [Unknown]
  - Nerve injury [Not Recovered/Not Resolved]

NARRATIVE: CASE EVENT DATE: 2015
